FAERS Safety Report 5966496-9 (Version None)
Quarter: 2008Q4

REPORT INFORMATION
  Report Type: 
  Country: None (occurrence: None)
  Receive Date: 20081125
  Receipt Date: 20081121
  Transmission Date: 20090506
  Serious: Yes (Hospitalization)
  Sender: FDA-Public Use
  Company Number: US-ASTRAZENECA-2008UW24415

PATIENT
  Age: 81 Year
  Sex: Male
  Weight: 58.1 kg

DRUGS (6)
  1. ATACAND [Suspect]
     Indication: CARDIAC FAILURE
     Route: 048
     Dates: start: 20081017
  2. CRESTOR [Concomitant]
     Route: 048
     Dates: start: 20080801
  3. LASIX [Concomitant]
     Dosage: OR AS DIRECTED
     Dates: start: 20080801
  4. ASPIRIN [Concomitant]
     Dates: start: 20080801
  5. PROSCAR [Concomitant]
     Dates: start: 20080801
  6. METOPROLOL TARTRATE [Concomitant]
     Dates: start: 20080801

REACTIONS (4)
  - CARDIAC FAILURE [None]
  - ECCHYMOSIS [None]
  - INCREASED TENDENCY TO BRUISE [None]
  - SINUSITIS [None]
